FAERS Safety Report 6315298-2 (Version None)
Quarter: 2009Q3

REPORT INFORMATION
  Report Type: 
  Country: None (occurrence: None)
  Receive Date: 20090819
  Receipt Date: 20090807
  Transmission Date: 20100115
  Serious: Yes (Hospitalization)
  Sender: FDA-Public Use
  Company Number: PHHY2009JP33528

PATIENT
  Sex: Male

DRUGS (10)
  1. FASTIC [Suspect]
     Indication: DIABETES MELLITUS
     Dosage: 210 MG/DAY
     Route: 048
     Dates: start: 20090722
  2. HYPEN [Concomitant]
     Indication: CANCER PAIN
     Dosage: 400 MG, UNK
     Dates: start: 20090708
  3. SELBEX [Concomitant]
     Indication: CANCER PAIN
     Dosage: 100 MG, UNK
     Dates: start: 20090708
  4. GASTER D [Concomitant]
     Indication: GASTRITIS HAEMORRHAGIC
     Dosage: 20 MG, UNK
     Dates: start: 20090709
  5. URSO 250 [Concomitant]
     Indication: CHOLANGITIS
     Dosage: 600 MG, UNK
     Dates: start: 20090710
  6. MAGMITT [Concomitant]
     Indication: CONSTIPATION
     Dosage: 1500 MG, UNK
     Dates: start: 20090713
  7. TRAVELMIN [Concomitant]
     Indication: VERTIGO
     Dosage: UNK
     Dates: start: 20090702
  8. KINEDAK [Concomitant]
     Indication: DIABETES MELLITUS
     Dosage: 150 MG, UNK
  9. METFORMIN HCL [Concomitant]
     Indication: DIABETES MELLITUS
     Dosage: UNK
     Dates: end: 20090722
  10. AMARYL [Concomitant]
     Indication: DIABETES MELLITUS
     Dosage: UNK
     Dates: end: 20090715

REACTIONS (11)
  - EOSINOPHIL COUNT INCREASED [None]
  - FATIGUE [None]
  - HAEMATOCRIT DECREASED [None]
  - HAEMOGLOBIN DECREASED [None]
  - LYMPHOCYTE COUNT DECREASED [None]
  - MONOCYTE COUNT INCREASED [None]
  - NEUTROPENIA [None]
  - NEUTROPHIL COUNT DECREASED [None]
  - PYREXIA [None]
  - RED BLOOD CELL COUNT DECREASED [None]
  - WHITE BLOOD CELL COUNT DECREASED [None]
